FAERS Safety Report 7282554-3 (Version None)
Quarter: 2011Q1

REPORT INFORMATION
  Report Type: 
  Country: None (occurrence: None)
  Receive Date: 20110209
  Receipt Date: 20110207
  Transmission Date: 20110831
  Serious: Yes (Disabling, Other)
  Sender: FDA-Public Use
  Company Number: US-PFIZER INC-2011027265

PATIENT
  Sex: Male
  Weight: 70 kg

DRUGS (8)
  1. METOPROLOL TARTRATE [Concomitant]
     Indication: CARDIAC DISORDER
     Dosage: 50 MG, 1X/DAY
     Route: 048
  2. CHANTIX [Suspect]
     Indication: SMOKING CESSATION THERAPY
     Dosage: 0.5 MG, 1X/DAY
     Route: 048
     Dates: start: 20110202, end: 20110207
  3. RAMIPRIL [Concomitant]
     Indication: HYPERTENSION
     Dosage: 10 MG, 1X/DAY
     Route: 048
  4. PLAVIX [Concomitant]
     Indication: ANTIPLATELET THERAPY
     Dosage: 75 MG, 1X/DAY
     Route: 048
  5. ACETYLSALICYLIC ACID [Concomitant]
     Indication: CARDIAC DISORDER
     Dosage: 81 MG, 1X/DAY
     Route: 048
  6. VALIUM [Concomitant]
     Indication: ANXIETY
     Dosage: 10 MG, 1X/DAY
     Route: 048
  7. OXYCODONE AND ACETAMINOPHEN [Concomitant]
     Indication: BACK PAIN
     Dosage: 7.5/325
     Route: 048
  8. FENTANYL [Concomitant]
     Indication: BACK PAIN
     Dosage: UNK
     Route: 062

REACTIONS (3)
  - HOMICIDAL IDEATION [None]
  - AGITATION [None]
  - NIGHTMARE [None]
